FAERS Safety Report 8070465-5 (Version None)
Quarter: 2012Q1

REPORT INFORMATION
  Report Type: 
  Country: None (occurrence: None)
  Receive Date: 20120125
  Receipt Date: 20120119
  Transmission Date: 20120608
  Serious: Yes (Death, Hospitalization, Other)
  Sender: FDA-Public Use
  Company Number: US-ELI_LILLY_AND_COMPANY-US201201005894

PATIENT
  Sex: Male

DRUGS (5)
  1. INTEGRILIN [Concomitant]
  2. EFFIENT [Suspect]
     Indication: STENT PLACEMENT
     Dosage: UNK, LOADING DOSE
     Dates: start: 20120110
  3. HEPARIN [Concomitant]
  4. COUMADIN [Concomitant]
  5. ASPIRIN [Concomitant]

REACTIONS (5)
  - HYPERHIDROSIS [None]
  - NAUSEA [None]
  - THROMBOSIS [None]
  - INFARCTION [None]
  - CEREBELLAR HAEMATOMA [None]
